FAERS Safety Report 26010302 (Version 2)
Quarter: 2025Q4

REPORT INFORMATION
  Report Type: Spontaneous
  Country: JP (occurrence: JP)
  Receive Date: 20251107
  Receipt Date: 20251121
  Transmission Date: 20260118
  Serious: No
  Sender: AMGEN
  Company Number: JP-KYOWAKIRIN-2025KK020818

PATIENT
  Age: 10 Decade
  Sex: Female

DRUGS (3)
  1. DARBEPOETIN ALFA [Suspect]
     Active Substance: DARBEPOETIN ALFA
     Indication: Nephrogenic anaemia
     Dosage: 30 UG, THE THIRD DOSE WAS AGAIN ADMINISTERED AT THE REPORTING HOSPITAL, FOLLOWING CONSULTATION WITH
     Route: 058
     Dates: start: 20251028
  2. DARBEPOETIN ALFA [Suspect]
     Active Substance: DARBEPOETIN ALFA
     Dosage: THE SECOND DOSE WAS GIVEN AT A DIFFERENT HOSPITAL TWO WEEKS LATER
     Route: 058
  3. DARBEPOETIN ALFA [Suspect]
     Active Substance: DARBEPOETIN ALFA
     Dosage: 30 UG, THE THIRD DOSE WAS AGAIN ADMINISTERED AT THE REPORTING HOSPITAL, FOLLOWING CONSULTATION WITH
     Route: 058
     Dates: start: 20251024

REACTIONS (1)
  - Off label use [Unknown]

NARRATIVE: CASE EVENT DATE: 20251028
